FAERS Safety Report 4875942-3 (Version None)
Quarter: 2005Q4

REPORT INFORMATION
  Report Type: 
  Country: None (occurrence: None)
  Receive Date: 20051205
  Receipt Date: 20051011
  Transmission Date: 20060501
  Serious: No
  Sender: FDA-Public Use
  Company Number: USA0510110490

PATIENT
  Age: 71 Year
  Sex: Male

DRUGS (4)
  1. ALIMTA [Suspect]
     Indication: METASTASES TO LIVER
     Dates: start: 20050929
  2. ALIMTA [Suspect]
     Indication: NON-SMALL CELL LUNG CANCER METASTATIC
     Dates: start: 20050929
  3. FOLIC ACID [Concomitant]
  4. VITAMIN B-12 [Concomitant]

REACTIONS (4)
  - ERYTHEMA [None]
  - PRURITUS [None]
  - PYREXIA [None]
  - RASH [None]
